FAERS Safety Report 6439375-0 (Version None)
Quarter: 2009Q4

REPORT INFORMATION
  Report Type: 
  Country: None (occurrence: None)
  Receive Date: 20091113
  Receipt Date: 20091106
  Transmission Date: 20100525
  Serious: Yes (Other)
  Sender: FDA-Public Use
  Company Number: US-ASTRAZENECA-2009SE24813

PATIENT
  Age: 44 Year
  Sex: Female

DRUGS (6)
  1. CRESTOR [Suspect]
     Route: 048
  2. SEROQUEL [Suspect]
     Route: 048
     Dates: start: 20000101
  3. SEROQUEL [Suspect]
     Route: 048
  4. CHLORPROMAZINE [Concomitant]
  5. ACTOS [Concomitant]
  6. COZAAR [Concomitant]

REACTIONS (1)
  - CATARACT [None]
